FAERS Safety Report 15274180 (Version 1)
Quarter: 2018Q3

REPORT INFORMATION
  Report Type: Report from Study
  Country: US (occurrence: US)
  Receive Date: 20180814
  Receipt Date: 20180814
  Transmission Date: 20181010
  Serious: No
  Sender: FDA-Public Use
  Company Number: US-ROCHE-2167625

PATIENT
  Sex: Female

DRUGS (1)
  1. OCREVUS [Suspect]
     Active Substance: OCRELIZUMAB
     Indication: RELAPSING MULTIPLE SCLEROSIS
     Dosage: ONGOING: UNKNOWN
     Route: 065
     Dates: start: 201707

REACTIONS (5)
  - Sinusitis [Unknown]
  - Upper respiratory tract infection [Unknown]
  - Therapeutic response shortened [Unknown]
  - Ear infection [Unknown]
  - Feeling abnormal [Unknown]
